FAERS Safety Report 20877290 (Version 4)
Quarter: 2022Q3

REPORT INFORMATION
  Report Type: Spontaneous
  Country: GB (occurrence: GB)
  Receive Date: 20220526
  Receipt Date: 20220914
  Transmission Date: 20221027
  Serious: Yes (Hospitalization, Other)
  Sender: FDA-Public Use
  Company Number: GB-MYLANLABS-2022M1038103

PATIENT
  Age: 52 Year
  Sex: Female

DRUGS (1)
  1. CLOZARIL [Suspect]
     Active Substance: CLOZAPINE
     Indication: Schizophrenia
     Dosage: UNK
     Route: 048
     Dates: start: 20210916

REACTIONS (5)
  - Hypoaesthesia [Unknown]
  - Neutropenia [Recovered/Resolved]
  - Protein total decreased [Unknown]
  - Blood albumin decreased [Unknown]
  - White blood cell morphology abnormal [Unknown]

NARRATIVE: CASE EVENT DATE: 20220901
